FAERS Safety Report 13844105 (Version 3)
Quarter: 2017Q3

REPORT INFORMATION
  Report Type: Spontaneous
  Country: US (occurrence: US)
  Receive Date: 20170808
  Receipt Date: 20170906
  Transmission Date: 20171127
  Serious: No
  Sender: FDA-Public Use
  Company Number: US-PFIZER INC-2017337842

PATIENT
  Age: 56 Year
  Sex: Male
  Weight: 86.17 kg

DRUGS (3)
  1. ROKACET [Concomitant]
     Indication: BREAKTHROUGH PAIN
     Dosage: 15 MG, AS NEEDED (UP TO 6 TIMES DAILY, , HAS BEEN TAKING FOR YEARS)
  2. EMBEDA [Suspect]
     Active Substance: MORPHINE SULFATE\NALTREXONE HYDROCHLORIDE
     Indication: ARTHRALGIA
  3. EMBEDA [Suspect]
     Active Substance: MORPHINE SULFATE\NALTREXONE HYDROCHLORIDE
     Indication: KNEE ARTHROPLASTY
     Dosage: 60 MG, 2X/DAY
     Route: 048

REACTIONS (4)
  - Withdrawal syndrome [Unknown]
  - Product quality issue [Unknown]
  - Malaise [Not Recovered/Not Resolved]
  - Drug ineffective [Unknown]
